FAERS Safety Report 7529817-1 (Version None)
Quarter: 2011Q2

REPORT INFORMATION
  Report Type: 
  Country: None (occurrence: None)
  Receive Date: 20110607
  Receipt Date: 20110527
  Transmission Date: 20111010
  Serious: Yes (Death, Life-Threatening, Hospitalization)
  Sender: FDA-Public Use
  Company Number: AU-ACTELION-A-CH2011-49184

PATIENT
  Sex: Male
  Weight: 41 kg

DRUGS (1)
  1. TRACLEER [Suspect]
     Indication: PULMONARY ARTERIAL HYPERTENSION
     Dosage: 62.5 MG, BID
     Route: 048
     Dates: start: 20101215, end: 20110516

REACTIONS (18)
  - VENTRICULAR TACHYCARDIA [None]
  - HEPATIC CONGESTION [None]
  - ALANINE AMINOTRANSFERASE INCREASED [None]
  - DIFFUSE ALVEOLAR DAMAGE [None]
  - LIVER FUNCTION TEST ABNORMAL [None]
  - BLOOD ALKALINE PHOSPHATASE ABNORMAL [None]
  - CONTINUOUS POSITIVE AIRWAY PRESSURE [None]
  - VENTRICULAR ASSIST DEVICE INSERTION [None]
  - LEFT VENTRICULAR DYSFUNCTION [None]
  - ASPARTATE AMINOTRANSFERASE INCREASED [None]
  - PNEUMONIA [None]
  - MULTI-ORGAN FAILURE [None]
  - ASCITES [None]
  - CARDIAC FAILURE [None]
  - BLOOD BILIRUBIN INCREASED [None]
  - SHOCK [None]
  - CONCOMITANT DISEASE PROGRESSION [None]
  - ACUTE RESPIRATORY DISTRESS SYNDROME [None]
